FAERS Safety Report 9828754 (Version 1)
Quarter: 2014Q1

REPORT INFORMATION
  Report Type: Spontaneous
  Country: US (occurrence: US)
  Receive Date: 20140117
  Receipt Date: 20140117
  Transmission Date: 20141002
  Serious: No
  Sender: FDA-Public Use
  Company Number: US-TEVA-456798USA

PATIENT
  Age: 78 Year
  Sex: Female
  Weight: 54.93 kg

DRUGS (2)
  1. PROAIR HFA [Suspect]
     Indication: HYPERSENSITIVITY
     Route: 055
     Dates: start: 20131215
  2. MAXZIDE [Concomitant]
     Indication: HYPERTENSION
     Dosage: 75/50 MG QD
     Route: 048

REACTIONS (3)
  - Chest discomfort [Not Recovered/Not Resolved]
  - Sensation of heaviness [Not Recovered/Not Resolved]
  - Discomfort [Not Recovered/Not Resolved]
